FAERS Safety Report 12223227 (Version 3)
Quarter: 2016Q3

REPORT INFORMATION
  Report Type: Spontaneous
  Country: US (occurrence: US)
  Receive Date: 20160330
  Receipt Date: 20160817
  Transmission Date: 20161109
  Serious: Yes (Hospitalization)
  Sender: FDA-Public Use
  Company Number: US-JNJFOC-20160326830

PATIENT
  Age: 73 Year
  Sex: Male

DRUGS (11)
  1. CRESTOR [Concomitant]
     Active Substance: ROSUVASTATIN CALCIUM
     Route: 065
  2. ZANTAC [Concomitant]
     Active Substance: RANITIDINE HYDROCHLORIDE
     Route: 065
  3. XARELTO [Suspect]
     Active Substance: RIVAROXABAN
     Indication: ATRIAL FIBRILLATION
     Route: 048
     Dates: start: 20140318, end: 20150406
  4. XARELTO [Suspect]
     Active Substance: RIVAROXABAN
     Indication: CEREBROVASCULAR ACCIDENT PROPHYLAXIS
     Route: 048
     Dates: start: 20140318, end: 20150406
  5. LOPRESSOR [Concomitant]
     Active Substance: METOPROLOL TARTRATE
     Route: 065
  6. MICARDIS [Concomitant]
     Active Substance: TELMISARTAN
     Route: 065
  7. FLOMAX [Concomitant]
     Active Substance: TAMSULOSIN HYDROCHLORIDE
     Route: 065
  8. INVOKANA [Concomitant]
     Active Substance: CANAGLIFLOZIN
     Route: 065
  9. TOUJEO [Concomitant]
     Active Substance: INSULIN GLARGINE
     Route: 065
  10. XARELTO [Suspect]
     Active Substance: RIVAROXABAN
     Indication: THROMBOSIS PROPHYLAXIS
     Route: 048
     Dates: start: 20140318, end: 20150406
  11. TAMSULOSIN [Concomitant]
     Active Substance: TAMSULOSIN
     Route: 065

REACTIONS (1)
  - Internal haemorrhage [Unknown]

NARRATIVE: CASE EVENT DATE: 20150908
